FAERS Safety Report 7806035-0 (Version None)
Quarter: 2011Q4

REPORT INFORMATION
  Report Type: 
  Country: None (occurrence: None)
  Receive Date: 20111011
  Receipt Date: 20110926
  Transmission Date: 20120403
  Serious: Yes (Other)
  Sender: FDA-Public Use
  Company Number: US-JNJFOC-20110804994

PATIENT
  Age: 40 Year
  Sex: Female

DRUGS (6)
  1. BENADRYL [Suspect]
     Indication: PRODUCT USED FOR UNKNOWN INDICATION
     Route: 061
  2. BENADRYL [Suspect]
     Route: 061
  3. BENADRYL [Suspect]
     Route: 048
  4. BENADRYL [Suspect]
     Indication: MULTIPLE ALLERGIES
     Dosage: RECOMMEDED AMOUNT AT THE RECOMMENED FREQUENCY
     Route: 048
  5. BENADRYL [Suspect]
     Route: 048
  6. BENADRYL [Suspect]
     Indication: MULTIPLE ALLERGIES
     Route: 048

REACTIONS (5)
  - SECRETION DISCHARGE [None]
  - SUICIDAL IDEATION [None]
  - PRODUCT QUALITY ISSUE [None]
  - PRURITUS GENERALISED [None]
  - RASH [None]
